FAERS Safety Report 8380673-1 (Version None)
Quarter: 2012Q2

REPORT INFORMATION
  Report Type: 
  Country: None (occurrence: None)
  Receive Date: 20120515
  Receipt Date: 20120430
  Transmission Date: 20120825
  Serious: Yes (Death, Hospitalization, Other)
  Sender: FDA-Public Use
  Company Number: 2011PROUSA01330

PATIENT
  Age: 89 Year
  Sex: Male

DRUGS (5)
  1. NILANDRON (NILAUTAMIDE) [Concomitant]
  2. PREDNISONE [Concomitant]
  3. DILAUDID [Concomitant]
  4. PROVENGE [Suspect]
     Indication: PROSTATE CANCER METASTATIC
     Dosage: 250 ML, SINGLE, INTRAVENOUS
     Route: 042
     Dates: start: 20110822, end: 20110822
  5. FENTANYL [Concomitant]

REACTIONS (20)
  - URINARY TRACT INFECTION [None]
  - BLOOD ALKALINE PHOSPHATASE INCREASED [None]
  - OXYGEN SATURATION DECREASED [None]
  - BLOOD GLUCOSE INCREASED [None]
  - PLEURAL EFFUSION [None]
  - NON-HODGKIN'S LYMPHOMA [None]
  - COLORECTAL CANCER [None]
  - THROMBOCYTOPENIA [None]
  - BLOOD UREA DECREASED [None]
  - PANCYTOPENIA [None]
  - LUNG NEOPLASM [None]
  - SPINAL FRACTURE [None]
  - PROSTATE CANCER METASTATIC [None]
  - DISEASE PROGRESSION [None]
  - PATHOLOGICAL FRACTURE [None]
  - METABOLIC ENCEPHALOPATHY [None]
  - MUSCULOSKELETAL PAIN [None]
  - CARDIOMYOPATHY [None]
  - RIB FRACTURE [None]
  - PNEUMONIA [None]
